FAERS Safety Report 12916608 (Version 1)
Quarter: 2016Q4

REPORT INFORMATION
  Report Type: Spontaneous
  Country: US (occurrence: US)
  Receive Date: 20161104
  Receipt Date: 20161104
  Transmission Date: 20170207
  Serious: Yes (Other)
  Sender: FDA-Public Use
  Company Number: None

PATIENT
  Age: 7 Year
  Sex: Male
  Weight: 40.05 kg

DRUGS (2)
  1. HYOSCYAMINE 0.125 MG SUBL VIRTUS PHARMACEUTICALS [Suspect]
     Active Substance: HYOSCYAMINE SULFATE
     Indication: ABDOMINAL PAIN
     Dosage: QUANTITY:30 TABLET(S); EVERY 8 HOURS; ORAL
     Route: 048
     Dates: start: 20160813, end: 20160929
  2. MULTIVITAMIN [Concomitant]
     Active Substance: VITAMINS

REACTIONS (3)
  - Weight decreased [None]
  - Decreased appetite [None]
  - Dry mouth [None]

NARRATIVE: CASE EVENT DATE: 20160814
